FAERS Safety Report 9470983 (Version 1)
Quarter: 2013Q3

REPORT INFORMATION
  Report Type: Spontaneous
  Country: FR (occurrence: FR)
  Receive Date: 20130822
  Receipt Date: 20130822
  Transmission Date: 20140515
  Serious: Yes (Hospitalization)
  Sender: FDA-Public Use
  Company Number: FR-JNJFOC-20130807406

PATIENT
  Age: 30 Year
  Sex: Female

DRUGS (2)
  1. EVRA [Suspect]
     Indication: CONTRACEPTION
     Route: 062
     Dates: start: 20130402, end: 20130618
  2. RISPERDAL CONSTA [Suspect]
     Indication: PARANOIA
     Dosage: 25 MG LP (INJECTION )
     Route: 030
     Dates: start: 20091001

REACTIONS (1)
  - Pulmonary embolism [Recovering/Resolving]
